FAERS Safety Report 6802929-3 (Version None)
Quarter: 2010Q2

REPORT INFORMATION
  Report Type: 
  Country: None (occurrence: None)
  Receive Date: 20100628
  Receipt Date: 20100616
  Transmission Date: 20101027
  Serious: Yes (Hospitalization)
  Sender: FDA-Public Use
  Company Number: FR-ALEXION-A201000448

PATIENT

DRUGS (8)
  1. SOLIRIS [Suspect]
     Indication: PAROXYSMAL NOCTURNAL HAEMOGLOBINURIA
     Dosage: UNK
  2. SOLIRIS [Suspect]
     Dosage: 900 MG, UNK
     Route: 042
  3. CLAMOXYL                           /00249601/ [Concomitant]
     Indication: ANTIBIOTIC PROPHYLAXIS
     Dosage: 500 MG, UNK
     Route: 048
  4. ZELITREX                           /01269701/ [Concomitant]
     Indication: ANTIBIOTIC PROPHYLAXIS
     Dosage: 500 MG, UNK
     Route: 048
  5. WELLVONE [Concomitant]
     Indication: ANTIBIOTIC PROPHYLAXIS
     Dosage: 750 MG, BID
     Route: 048
  6. MAGNE-B6 ORAL [Concomitant]
     Indication: ANTIBIOTIC PROPHYLAXIS
     Dosage: 2 TABLETS, TID
     Route: 048
  7. INEXIUM                            /01479302/ [Concomitant]
     Indication: PROPHYLAXIS AGAINST GASTROINTESTINAL ULCER
     Dosage: 40 MG, UNK
     Route: 048
  8. NEUPOGEN [Concomitant]
     Indication: APLASTIC ANAEMIA
     Dosage: 1 INJECTION /48H
     Route: 058

REACTIONS (1)
  - MYCOTIC ANEURYSM [None]
